FAERS Safety Report 26153893 (Version 1)
Quarter: 2025Q4

REPORT INFORMATION
  Report Type: Spontaneous
  Country: US (occurrence: US)
  Receive Date: 20251214
  Receipt Date: 20251214
  Transmission Date: 20260117
  Serious: Yes (Other)
  Sender: AUCTA PHARMACEUTICALS INC.
  Company Number: US-AUCTA-000045

PATIENT
  Age: 36 Year
  Sex: Female

DRUGS (2)
  1. LACOSAMIDE [Suspect]
     Active Substance: LACOSAMIDE
     Indication: Product used for unknown indication
     Route: 048
     Dates: start: 20250522
  2. CARBATROL [Concomitant]
     Active Substance: CARBAMAZEPINE
     Indication: Product used for unknown indication
     Dosage: 540 CAPSULES / 90-DAY SUPPLY

REACTIONS (3)
  - Seizure [Unknown]
  - Dizziness [Unknown]
  - Product use issue [Unknown]
